FAERS Safety Report 6441524-5 (Version None)
Quarter: 2009Q4

REPORT INFORMATION
  Report Type: 
  Country: None (occurrence: None)
  Receive Date: 20091110
  Receipt Date: 20090714
  Transmission Date: 20100525
  Serious: No
  Sender: FDA-Public Use
  Company Number: 1000006676

PATIENT
  Age: 57 Year
  Sex: Female
  Weight: 77.1115 kg

DRUGS (3)
  1. SAVELLA [Suspect]
     Indication: FIBROMYALGIA
     Dosage: 12.5 MG (12.5 MG, 1 IN 1 D), ORAL : 25 MG (12.5 MG, 2 IN 1 D), ORAL
     Route: 048
     Dates: start: 20090529, end: 20090529
  2. SAVELLA [Suspect]
     Indication: FIBROMYALGIA
     Dosage: 12.5 MG (12.5 MG, 1 IN 1 D), ORAL : 25 MG (12.5 MG, 2 IN 1 D), ORAL
     Route: 048
     Dates: start: 20090530, end: 20090531
  3. SAVELLA [Suspect]
     Indication: FIBROMYALGIA
     Dosage: 50 MG (25 MG, 2 IN 1 D), ORAL
     Route: 048
     Dates: start: 20090601, end: 20090601

REACTIONS (2)
  - ASTHENIA [None]
  - PAIN [None]
